FAERS Safety Report 7729300-4 (Version None)
Quarter: 2011Q3

REPORT INFORMATION
  Report Type: 
  Country: None (occurrence: None)
  Receive Date: 20110817
  Receipt Date: 20110526
  Transmission Date: 20111222
  Serious: Yes (Other)
  Sender: FDA-Public Use
  Company Number: 201110624

PATIENT
  Age: 47 Year
  Sex: Male

DRUGS (1)
  1. LIORESAL [Suspect]
     Indication: MUSCLE SPASTICITY
     Dosage: 132.89 MCG, DAILY, INTRATHECAL
     Route: 037

REACTIONS (2)
  - HYPERTONIA [None]
  - PARAESTHESIA [None]
